FAERS Safety Report 17335971 (Version 1)
Quarter: 2020Q1

REPORT INFORMATION
  Report Type: Spontaneous
  Country: US (occurrence: US)
  Receive Date: 20200129
  Receipt Date: 20200129
  Transmission Date: 20200409
  Serious: No
  Sender: FDA-Public Use
  Company Number: US-DRREDDYS-USA/USA/20/0118782

PATIENT
  Sex: Male

DRUGS (1)
  1. ZENATANE [Suspect]
     Active Substance: ISOTRETINOIN
     Indication: PRODUCT USED FOR UNKNOWN INDICATION
     Dosage: RMA ISSSUE DATES WERE NOTED AS 22 AUGUST 2019, 26 SEPTEMBER 2019 AND 25 OCTOBER 2019
     Route: 048

REACTIONS (2)
  - Therapy cessation [Unknown]
  - Product dose omission [Unknown]
